FAERS Safety Report 5239212-6 (Version None)
Quarter: 2007Q1

REPORT INFORMATION
  Report Type: 
  Country: None (occurrence: None)
  Receive Date: 20070212
  Receipt Date: 20070130
  Transmission Date: 20070707
  Serious: Yes (Congenital Anomaly, Other)
  Sender: FDA-Public Use
  Company Number: SPV1-2006-02311

PATIENT
  Sex: Male

DRUGS (6)
  1. PENTASA [Suspect]
     Indication: COLITIS ULCERATIVE
     Dosage: SEE IMAGE
     Dates: start: 20051207, end: 20060802
  2. PENTASA [Suspect]
     Indication: COLITIS ULCERATIVE
     Dosage: SEE IMAGE
     Dates: start: 20060823
  3. SULFASALAZINE [Suspect]
     Indication: COLITIS ULCERATIVE
     Dosage: 2000 MG DAILY, TRANSPLACENTAL
     Route: 064
     Dates: start: 20060803, end: 20060822
  4. PREDNISOLONE [Suspect]
     Indication: COLITIS ULCERATIVE
     Dosage: SEE IMAGE
     Route: 064
     Dates: end: 20060802
  5. PREDNISOLONE [Suspect]
     Indication: COLITIS ULCERATIVE
     Dosage: SEE IMAGE
     Route: 064
     Dates: start: 20060804
  6. STERONEMA (BETAMETHASONE SODIUM PHOSPHATE) [Suspect]
     Indication: COLITIS ULCERATIVE
     Dosage: 3 MG DAILY, TRANSPLACENTAL
     Route: 064
     Dates: start: 20060111, end: 20060812

REACTIONS (5)
  - APLASIA CUTIS CONGENITA [None]
  - CAESAREAN SECTION [None]
  - CONGENITAL BRAIN DAMAGE [None]
  - DRUG EXPOSURE DURING PREGNANCY [None]
  - FOETAL DISTRESS SYNDROME [None]
